FAERS Safety Report 16802007 (Version 2)
Quarter: 2019Q4

REPORT INFORMATION
  Report Type: Spontaneous
  Country: DE (occurrence: DE)
  Receive Date: 20190912
  Receipt Date: 20191114
  Transmission Date: 20200122
  Serious: Yes (Other)
  Sender: FDA-Public Use
  Company Number: DE-MYLANLABS-2019M1084465

PATIENT
  Sex: Female

DRUGS (7)
  1. ESCITALOPRAM [Suspect]
     Active Substance: ESCITALOPRAM OXALATE
     Indication: DEPRESSION
     Dosage: UNK
     Route: 065
  2. CIPRALEX [Interacting]
     Active Substance: ESCITALOPRAM OXALATE
     Indication: DEPRESSION
     Dosage: 10 MILLIGRAM
     Route: 065
     Dates: start: 2007
  3. IBUPROFEN. [Interacting]
     Active Substance: IBUPROFEN
     Indication: PRODUCT USED FOR UNKNOWN INDICATION
     Dosage: UNK
     Route: 065
  4. CIPRALEX [Interacting]
     Active Substance: ESCITALOPRAM OXALATE
     Dosage: 5 MILLIGRAM
     Route: 065
  5. CIPRALEX [Interacting]
     Active Substance: ESCITALOPRAM OXALATE
     Dosage: 7.5 MILLIGRAM, QOD
     Route: 065
  6. ESCITALOPRAM [Suspect]
     Active Substance: ESCITALOPRAM OXALATE
     Indication: BURNOUT SYNDROME
     Dosage: UNK
  7. CIPRALEX [Interacting]
     Active Substance: ESCITALOPRAM OXALATE
     Indication: BURNOUT SYNDROME
     Dosage: 5 MILLIGRAM, QD
     Route: 065

REACTIONS (14)
  - Depression [Unknown]
  - Panic attack [Unknown]
  - Drug intolerance [Unknown]
  - Hypertension [Unknown]
  - Burnout syndrome [Unknown]
  - Heart rate increased [Unknown]
  - Stress [Unknown]
  - Near death experience [Unknown]
  - Restlessness [Unknown]
  - Product use issue [Unknown]
  - Drug interaction [Unknown]
  - Palpitations [Unknown]
  - Hyperhidrosis [Unknown]
  - Underdose [Unknown]

NARRATIVE: CASE EVENT DATE: 2017
